FAERS Safety Report 15218744 (Version 1)
Quarter: 2018Q3

REPORT INFORMATION
  Report Type: Spontaneous
  Country: CL (occurrence: CL)
  Receive Date: 20180731
  Receipt Date: 20180731
  Transmission Date: 20181010
  Serious: Yes (Other)
  Sender: FDA-Public Use
  Company Number: CL-MERCK KGAA-2052965

PATIENT
  Age: 40 Year
  Sex: Female

DRUGS (1)
  1. NOVOTHYROX [Suspect]
     Active Substance: LEVOTHYROXINE SODIUM
     Indication: PRODUCT USED FOR UNKNOWN INDICATION

REACTIONS (8)
  - Blood thyroid stimulating hormone abnormal [None]
  - Headache [None]
  - Blood triglycerides abnormal [None]
  - Myalgia [None]
  - Mood altered [None]
  - Weight increased [None]
  - Bone pain [None]
  - Thyroxine abnormal [None]
